FAERS Safety Report 10149098 (Version 1)
Quarter: 2014Q2

REPORT INFORMATION
  Report Type: Spontaneous
  Country: US (occurrence: US)
  Receive Date: 20140502
  Receipt Date: 20140502
  Transmission Date: 20141212
  Serious: Yes (Life-Threatening, Hospitalization, Congenital Anomaly, Other)
  Sender: FDA-Public Use
  Company Number: US-JNJFOC-20140417400

PATIENT
  Sex: Male

DRUGS (2)
  1. TOPAMAX [Suspect]
     Indication: MIGRAINE
     Route: 064
  2. WELLBUTRIN SR [Suspect]
     Indication: MIGRAINE
     Route: 064

REACTIONS (19)
  - Kidney fibrosis [Unknown]
  - Hyperbilirubinaemia [Unknown]
  - Conductive deafness [Unknown]
  - Feeding disorder [Unknown]
  - Cryptorchism [Unknown]
  - Respiratory distress [Recovering/Resolving]
  - Hypotonia [Unknown]
  - Ventricular septal defect [Unknown]
  - Stridor [Recovered/Resolved]
  - Micropenis [Unknown]
  - Developmental delay [Unknown]
  - Chromosomal deletion [Unknown]
  - Atrial septal defect [Unknown]
  - Brain malformation [Unknown]
  - Congenital central nervous system anomaly [Unknown]
  - Neuromyopathy [Unknown]
  - Otorrhoea [Unknown]
  - Micrognathia [Unknown]
  - Foetal exposure during pregnancy [Recovered/Resolved]
